FAERS Safety Report 13986094 (Version 2)
Quarter: 2017Q4

REPORT INFORMATION
  Report Type: Spontaneous
  Country: JP (occurrence: JP)
  Receive Date: 20170919
  Receipt Date: 20171002
  Transmission Date: 20180321
  Serious: Yes (Hospitalization, Other)
  Sender: FDA-Public Use
  Company Number: JP-TEVA-2017-JP-003054J

PATIENT
  Age: 86 Year
  Sex: Female

DRUGS (2)
  1. PREDNISOLONE TABLETS 5MG. [Suspect]
     Active Substance: PREDNISOLONE
     Dosage: 8 MILLIGRAM DAILY;
     Route: 048
  2. PREDNISOLONE TABLETS 5MG. [Suspect]
     Active Substance: PREDNISOLONE
     Indication: POLYMYALGIA RHEUMATICA
     Dosage: 15 MILLIGRAM DAILY;
     Route: 048

REACTIONS (8)
  - Lung infection [Recovering/Resolving]
  - Spinal compression fracture [Unknown]
  - Klebsiella infection [Recovering/Resolving]
  - Bacteraemia [Recovering/Resolving]
  - Deep vein thrombosis [Unknown]
  - Systemic inflammatory response syndrome [Unknown]
  - Renal impairment [Unknown]
  - Burkholderia cepacia complex infection [Recovering/Resolving]
